FAERS Safety Report 5633365-3 (Version None)
Quarter: 2008Q1

REPORT INFORMATION
  Report Type: 
  Country: None (occurrence: None)
  Receive Date: 20080221
  Receipt Date: 20080215
  Transmission Date: 20080703
  Serious: Yes (Other)
  Sender: FDA-Public Use
  Company Number: US-ALLERGAN-0801882US

PATIENT
  Sex: Male

DRUGS (2)
  1. REFRESH P.M. [Suspect]
     Indication: DRY EYE
     Dosage: 1 GTT, SINGLE
     Route: 047
     Dates: start: 20080214, end: 20080214
  2. UNSPECIFIED MEDICATION [Concomitant]
     Indication: ASTHMA
     Route: 048
     Dates: start: 19720101

REACTIONS (1)
  - DYSPNOEA [None]
